FAERS Safety Report 5881379-0 (Version None)
Quarter: 2008Q3

REPORT INFORMATION
  Report Type: 
  Country: None (occurrence: None)
  Receive Date: 20080912
  Receipt Date: 20080627
  Transmission Date: 20090109
  Serious: No
  Sender: FDA-Public Use
  Company Number: US-ABBOTT-08P-163-0460067-00

PATIENT
  Sex: Female
  Weight: 49.94 kg

DRUGS (7)
  1. HUMIRA [Suspect]
     Indication: PSORIASIS
     Route: 058
     Dates: start: 20080627
  2. HUMIRA [Suspect]
  3. HUMIRA [Suspect]
     Route: 058
  4. HUMIRA [Suspect]
     Route: 058
  5. ALBUTEROL SPIROS [Concomitant]
     Indication: SEASONAL ALLERGY
     Dosage: 2 - 4 PUFFS, AS REQUIRED
     Route: 055
     Dates: start: 20080501
  6. ADVIR [Concomitant]
     Indication: SEASONAL ALLERGY
     Route: 055
     Dates: start: 20080501
  7. BIRTH CONTROL [Concomitant]
     Indication: CONTRACEPTION
     Route: 048
     Dates: start: 20080101

REACTIONS (2)
  - ACCIDENTAL EXPOSURE [None]
  - INJECTION SITE HAEMORRHAGE [None]
